FAERS Safety Report 11683618 (Version 1)
Quarter: 2015Q4

REPORT INFORMATION
  Report Type: Spontaneous
  Country: CN (occurrence: CN)
  Receive Date: 20151029
  Receipt Date: 20151029
  Transmission Date: 20160304
  Serious: Yes (Other)
  Sender: FDA-Public Use
  Company Number: CN-BAYER-2015-453465

PATIENT
  Age: 92 Year
  Sex: Male
  Weight: 48 kg

DRUGS (1)
  1. LORATADINE. [Suspect]
     Active Substance: LORATADINE
     Indication: DERMATITIS ALLERGIC
     Dosage: 10 MG, QD
     Route: 048
     Dates: start: 20150322, end: 20150328

REACTIONS (3)
  - Somnolence [Recovering/Resolving]
  - Headache [Recovering/Resolving]
  - Dry mouth [Recovering/Resolving]

NARRATIVE: CASE EVENT DATE: 20150324
